FAERS Safety Report 9198595 (Version 2)
Quarter: 2014Q4

REPORT INFORMATION
  Report Type: Report from Study
  Country: US (occurrence: US)
  Receive Date: 20130329
  Receipt Date: 20141106
  Transmission Date: 20150529
  Serious: No
  Sender: FDA-Public Use
  Company Number: US-JNJFOC-20130313886

PATIENT
  Age: 64 Year
  Sex: Female

DRUGS (1)
  1. DURAGESIC [Suspect]
     Active Substance: FENTANYL
     Indication: PRODUCT USED FOR UNKNOWN INDICATION
     Route: 062

REACTIONS (6)
  - Muscle spasms [Unknown]
  - Withdrawal syndrome [Unknown]
  - Application site bruise [Unknown]
  - Drug dose omission [Unknown]
  - Application site nodule [Unknown]
  - Insomnia [Unknown]

NARRATIVE: CASE EVENT DATE: 20130318
